FAERS Safety Report 15075231 (Version 1)
Quarter: 2018Q2

REPORT INFORMATION
  Report Type: Report from Study
  Country: US (occurrence: US)
  Receive Date: 20180627
  Receipt Date: 20180627
  Transmission Date: 20180711
  Serious: No
  Sender: FDA-Public Use
  Company Number: US-SAOL THERAPEUTICS-2018SAO00082

PATIENT
  Sex: Male
  Weight: 108.84 kg

DRUGS (37)
  1. BACLOFEN. [Suspect]
     Active Substance: BACLOFEN
     Dosage: 115.15 ?G, \DAY
     Route: 037
     Dates: start: 20171206, end: 20171226
  2. BACLOFEN. [Suspect]
     Active Substance: BACLOFEN
     Dosage: 120.01 ?G, \DAY
     Route: 037
     Dates: start: 20170817
  3. BACLOFEN. [Suspect]
     Active Substance: BACLOFEN
     Dosage: 139.92 ?G, \DAY
     Route: 037
     Dates: end: 20171011
  4. HYDROMORPHONE [Suspect]
     Active Substance: HYDROMORPHONE
     Dosage: 28.187 ?G, \DAY - MAX
     Route: 037
     Dates: start: 20170817
  5. BACLOFEN. [Suspect]
     Active Substance: BACLOFEN
     Dosage: 100.27 ?G, \DAY
     Route: 037
     Dates: start: 20171011
  6. PRIALT [Suspect]
     Active Substance: ZICONOTIDE ACETATE
     Dosage: 4.00 ?G, \DAY
     Route: 037
     Dates: start: 20170817
  7. PRIALT [Suspect]
     Active Substance: ZICONOTIDE ACETATE
     Dosage: 5.013 ?G, \DAY
     Route: 037
     Dates: start: 20171011
  8. PRIALT [Suspect]
     Active Substance: ZICONOTIDE ACETATE
     Dosage: 6.693 ?G, \DAY - MAX
     Route: 037
     Dates: start: 20171011
  9. BACLOFEN. [Suspect]
     Active Substance: BACLOFEN
     Dosage: 188.89 ?G, \DAY - MAX
     Route: 037
     Dates: end: 20171011
  10. HYDROMORPHONE [Suspect]
     Active Substance: HYDROMORPHONE
     Dosage: 21.555 ?G, \DAY - MAX
     Route: 037
     Dates: end: 20170817
  11. HYDROMORPHONE [Suspect]
     Active Substance: HYDROMORPHONE
     Dosage: 20.002 ?G, \DAY
     Route: 037
     Dates: start: 20170817
  12. HYDROMORPHONE [Suspect]
     Active Substance: HYDROMORPHONE
     Dosage: 26.287 ?G, \DAY
     Route: 037
     Dates: start: 20171226
  13. PRIALT [Suspect]
     Active Substance: ZICONOTIDE ACETATE
     Dosage: 4.000 ?G, \DAY
     Route: 037
  14. PRIALT [Suspect]
     Active Substance: ZICONOTIDE ACETATE
     Dosage: 5.757 ?G, \DAY
     Route: 037
     Dates: start: 20171206, end: 20171226
  15. BACLOFEN. [Suspect]
     Active Substance: BACLOFEN
     Dosage: 125.17 ?G, \DAY
     Route: 037
     Dates: start: 20171226
  16. HYDROMORPHONE [Suspect]
     Active Substance: HYDROMORPHONE
     Dosage: 32.248 ?G, \DAY - MAX
     Route: 037
     Dates: start: 20171206, end: 20171226
  17. HYDROMORPHONE [Suspect]
     Active Substance: HYDROMORPHONE
     Dosage: 42.363 ?G, \DAY - MAX
     Route: 037
     Dates: start: 20171226
  18. PRIALT [Suspect]
     Active Substance: ZICONOTIDE ACETATE
     Dosage: 3.334 ?G, \DAY
     Route: 037
     Dates: end: 20170817
  19. PRIALT [Suspect]
     Active Substance: ZICONOTIDE ACETATE
     Dosage: 7.678 ?G, \DAY - MAX
     Route: 037
     Dates: start: 20171206, end: 20171226
  20. HYDROMORPHONE [Suspect]
     Active Substance: HYDROMORPHONE
     Dosage: 23.320 ?G, \DAY
     Route: 037
     Dates: end: 20171011
  21. BACLOFEN. [Suspect]
     Active Substance: BACLOFEN
     Dosage: 133.86 ?G, \DAY - MAX
  22. BACLOFEN. [Suspect]
     Active Substance: BACLOFEN
     Dosage: 153.56 ?G, \DAY - MAX
     Route: 037
     Dates: start: 20171206, end: 20171226
  23. PRIALT [Suspect]
     Active Substance: ZICONOTIDE ACETATE
     Dosage: 5.637 ?G, \DAY - MAX
     Route: 037
     Dates: start: 20170817
  24. PRIALT [Suspect]
     Active Substance: ZICONOTIDE ACETATE
     Dosage: 10.086 ?G, \DAY - MAX
     Route: 037
     Dates: start: 20171226
  25. HYDROMORPHONE [Suspect]
     Active Substance: HYDROMORPHONE
     Dosage: 16.668 ?G, \DAY
     Route: 037
     Dates: end: 20170817
  26. BACLOFEN. [Suspect]
     Active Substance: BACLOFEN
     Dosage: 201.73 ?G, \DAY - MAX
     Route: 037
     Dates: start: 20171226
  27. HYDROMORPHONE [Suspect]
     Active Substance: HYDROMORPHONE
     Dosage: 21.057 ?G, \DAY
     Route: 037
     Dates: start: 20171011
  28. BACLOFEN. [Suspect]
     Active Substance: BACLOFEN
     Dosage: 100.01 ?G, \DAY
     Route: 037
     Dates: end: 20170817
  29. BACLOFEN. [Suspect]
     Active Substance: BACLOFEN
     Dosage: 129.33 ?G, \DAY - MAX
     Route: 037
     Dates: end: 20170817
  30. HYDROMORPHONE [Suspect]
     Active Substance: HYDROMORPHONE
     Dosage: 31.481 ?G, \DAY - MAX
     Route: 037
     Dates: end: 20171011
  31. HYDROMORPHONE [Suspect]
     Active Substance: HYDROMORPHONE
     Dosage: 24.181 ?G, \DAY
     Route: 037
     Dates: start: 20171206, end: 20171226
  32. PRIALT [Suspect]
     Active Substance: ZICONOTIDE ACETATE
     Dosage: 4.311 ?G, \DAY - MAX
     Route: 037
     Dates: end: 20170817
  33. PRIALT [Suspect]
     Active Substance: ZICONOTIDE ACETATE
     Dosage: 4.664 ?G, \DAY
     Route: 037
     Dates: end: 20171011
  34. HYDROMORPHONE [Suspect]
     Active Substance: HYDROMORPHONE
     Dosage: 28.110 ?G, \DAY - MAX
     Route: 037
     Dates: start: 20171011
  35. PRIALT [Suspect]
     Active Substance: ZICONOTIDE ACETATE
     Dosage: 6.296 ?G, \DAY - MAX
     Route: 037
     Dates: end: 20171011
  36. PRIALT [Suspect]
     Active Substance: ZICONOTIDE ACETATE
     Dosage: 6.259 ?G, \DAY
     Route: 037
     Dates: start: 20171226
  37. BACLOFEN. [Suspect]
     Active Substance: BACLOFEN
     Dosage: 169.12 ?G, \DAY - MAX
     Route: 037
     Dates: start: 20170817

REACTIONS (3)
  - Device occlusion [Recovered/Resolved]
  - Pain [Recovered/Resolved]
  - Therapy non-responder [Recovered/Resolved]
